FAERS Safety Report 25275313 (Version 1)
Quarter: 2025Q2

REPORT INFORMATION
  Report Type: Spontaneous
  Country: JP (occurrence: JP)
  Receive Date: 20250506
  Receipt Date: 20250506
  Transmission Date: 20250717
  Serious: Yes (Hospitalization, Other)
  Sender: MERCK SHARP & DOHME LLC
  Company Number: JP-009507513-2281875

PATIENT
  Age: 8 Decade
  Sex: Female

DRUGS (2)
  1. KEYTRUDA [Suspect]
     Active Substance: PEMBROLIZUMAB
     Indication: Transitional cell carcinoma
     Dosage: 7 CYCLES
     Route: 041
     Dates: start: 202410, end: 202503
  2. PADCEV [Suspect]
     Active Substance: ENFORTUMAB VEDOTIN-EJFV
     Indication: Transitional cell carcinoma
     Route: 041
     Dates: start: 202410, end: 202503

REACTIONS (4)
  - Hyperglycaemia [Recovered/Resolved]
  - Type 1 diabetes mellitus [Unknown]
  - Anti-GAD antibody positive [Unknown]
  - Insulin C-peptide decreased [Unknown]

NARRATIVE: CASE EVENT DATE: 20250301
